FAERS Safety Report 7391801 (Version 4)
Quarter: 2014Q1

REPORT INFORMATION
  Report Type: Spontaneous
  Country: US (occurrence: US)
  Receive Date: 20100518
  Receipt Date: 20140131
  Transmission Date: 20141002
  Serious: Yes (Hospitalization, Other)
  Sender: FDA-Public Use
  Company Number: US-BAYER-201021934NA

PATIENT
  Age: 31 Year
  Sex: Female
  Weight: 102.27 kg

DRUGS (18)
  1. YASMIN [Suspect]
     Indication: ORAL CONTRACEPTION
     Route: 048
     Dates: start: 200405, end: 200601
  2. YASMIN [Suspect]
     Indication: MENSTRUAL DISORDER
     Route: 048
     Dates: start: 200603, end: 200607
  3. YAZ [Suspect]
     Indication: MENSTRUAL CYCLE MANAGEMENT
     Route: 048
     Dates: start: 200405, end: 200601
  4. YAZ [Suspect]
     Indication: POLYCYSTIC OVARIES
     Route: 048
     Dates: start: 200603, end: 200607
  5. YAZ [Suspect]
     Indication: ORAL CONTRACEPTION
  6. Z-PAK [Concomitant]
  7. AMOXICILLIN [Concomitant]
  8. LEVAQUIN [Concomitant]
  9. EXCEDRIN [CAFFEINE,PARACETAMOL] [Concomitant]
  10. VITAMIN C [Concomitant]
  11. ADVAIR [Concomitant]
  12. ALBUTEROL INHALER [Concomitant]
     Indication: ASTHMA
     Dates: start: 2004, end: 2007
  13. PHENTERMINE [Concomitant]
  14. GLUCOPHAGE XR [Concomitant]
     Dosage: 500 MG, TID
     Route: 048
  15. TOPAMAX [Concomitant]
     Dosage: 100 MG, CONT
     Route: 048
  16. XENICAL [Concomitant]
     Dosage: 120 MG, TID
     Route: 048
  17. LORTAB [Concomitant]
  18. MULTIVITAMINS [Concomitant]

REACTIONS (2)
  - Gallbladder disorder [Unknown]
  - Cholecystitis chronic [None]
